FAERS Safety Report 15441794 (Version 1)
Quarter: 2018Q3

REPORT INFORMATION
  Report Type: Report from Study
  Country: US (occurrence: US)
  Receive Date: 20180928
  Receipt Date: 20180928
  Transmission Date: 20181010
  Serious: No
  Sender: FDA-Public Use
  Company Number: US-AMGEN-USASL2018049099

PATIENT
  Age: 59 Year
  Sex: Male

DRUGS (5)
  1. PROLIA [Suspect]
     Active Substance: DENOSUMAB
     Indication: TYPE 2 DIABETES MELLITUS
  2. PROLIA [Suspect]
     Active Substance: DENOSUMAB
     Indication: MUSCULOSKELETAL DISORDER
     Dosage: UNK, Q6MO
     Route: 065
  3. PROLIA [Suspect]
     Active Substance: DENOSUMAB
     Indication: CONNECTIVE TISSUE DISORDER
  4. PROLIA [Suspect]
     Active Substance: DENOSUMAB
     Indication: DIABETIC NEUROPATHY
  5. PROLIA [Suspect]
     Active Substance: DENOSUMAB
     Indication: CROHN^S DISEASE

REACTIONS (1)
  - Off label use [Unknown]
